FAERS Safety Report 8598341-X (Version None)
Quarter: 2012Q3

REPORT INFORMATION
  Report Type: 
  Country: None (occurrence: None)
  Receive Date: 20120816
  Receipt Date: 20120813
  Transmission Date: 20120928
  Serious: No
  Sender: FDA-Public Use
  Company Number: US-TEVA-353845USA

PATIENT
  Sex: Female
  Weight: 99.88 kg

DRUGS (2)
  1. ACYCLOVIR [Concomitant]
     Indication: HERPES VIRUS INFECTION
  2. PLAN B ONE-STEP [Suspect]
     Indication: POST COITAL CONTRACEPTION
     Dosage: 1.5 MILLIGRAM DAILY;
     Route: 048
     Dates: start: 20120802, end: 20120802

REACTIONS (1)
  - BREAST TENDERNESS [None]
